FAERS Safety Report 24379258 (Version 1)
Quarter: 2024Q3

REPORT INFORMATION
  Report Type: Spontaneous
  Country: US (occurrence: None)
  Receive Date: 20240928
  Receipt Date: 20240928
  Transmission Date: 20241017
  Serious: Yes (Death)
  Sender: Public
  Company Number: None

PATIENT
  Age: 61 Year
  Sex: Female
  Weight: 61.23 kg

DRUGS (8)
  1. LEVOFLOXACIN [Suspect]
     Active Substance: LEVOFLOXACIN
     Indication: Urinary tract infection
     Dosage: 1 PILL ONCE DAILY MOUTH ??GIVE BEST ESTIMATE OF DURATION:?SHE HAD A 10 DAY SCRIPT OF LEVAQUIN WITHIN
     Route: 048
     Dates: start: 20240819, end: 20240825
  2. AMITRIPTYLINE [Concomitant]
     Active Substance: AMITRIPTYLINE
  3. LEVAQUIN [Concomitant]
     Active Substance: LEVOFLOXACIN
  4. UBRELVY [Concomitant]
     Active Substance: UBROGEPANT
  5. JANUVIA [Concomitant]
     Active Substance: SITAGLIPTIN PHOSPHATE
  6. uapra [Concomitant]
  7. AZO [Concomitant]
     Active Substance: PHENAZOPYRIDINE HYDROCHLORIDE
  8. PROBIOTICS NOS [Concomitant]
     Active Substance: PROBIOTICS NOS

REACTIONS (10)
  - Gastrointestinal pain [None]
  - Nausea [None]
  - Hallucination [None]
  - Tremor [None]
  - Confusional state [None]
  - Seizure [None]
  - Hyperhidrosis [None]
  - Completed suicide [None]
  - Urinary tract infection [None]
  - Delirium [None]

NARRATIVE: CASE EVENT DATE: 20240801
